FAERS Safety Report 6634200-7 (Version None)
Quarter: 2010Q1

REPORT INFORMATION
  Report Type: 
  Country: None (occurrence: None)
  Receive Date: 20100311
  Receipt Date: 20100311
  Transmission Date: 20100710
  Serious: No
  Sender: FDA-Public Use
  Company Number: None

PATIENT
  Sex: Female
  Weight: 79.3795 kg

DRUGS (2)
  1. LEVAQUIN [Suspect]
     Indication: PROPHYLAXIS
     Dosage: 1 PILL 1X A DAY
     Dates: start: 20080729, end: 20080803
  2. LEVAQUIN [Suspect]
     Indication: URINARY TRACT INFECTION
     Dosage: 1 PILL 1X A DAY
     Dates: start: 20080729, end: 20080803

REACTIONS (2)
  - TENDON DISORDER [None]
  - TENDON PAIN [None]
